FAERS Safety Report 5872253-4 (Version None)
Quarter: 2008Q3

REPORT INFORMATION
  Report Type: 
  Country: None (occurrence: None)
  Receive Date: 20080905
  Receipt Date: 20080828
  Transmission Date: 20090109
  Serious: Yes (Life-Threatening, Hospitalization)
  Sender: FDA-Public Use
  Company Number: JP-MERCK-0805USA03069

PATIENT
  Age: 36 Year
  Sex: Female

DRUGS (3)
  1. PEPCID RPD [Suspect]
     Indication: GASTRITIS
     Route: 048
     Dates: start: 20060122, end: 20060124
  2. LOXOPROFEN [Suspect]
     Indication: DYSMENORRHOEA
     Route: 048
     Dates: start: 20060123, end: 20060123
  3. EXCELASE [Concomitant]
     Indication: ABDOMINAL PAIN UPPER
     Route: 048
     Dates: start: 20060123, end: 20060124

REACTIONS (1)
  - HEPATIC FUNCTION ABNORMAL [None]
